FAERS Safety Report 4861871-8 (Version None)
Quarter: 2005Q4

REPORT INFORMATION
  Report Type: 
  Country: None (occurrence: None)
  Receive Date: 20051130
  Receipt Date: 20050716
  Transmission Date: 20060501
  Serious: Yes (Other)
  Sender: FDA-Public Use
  Company Number: 200511438BWH

PATIENT
  Sex: Male

DRUGS (1)
  1. CIPRO [Suspect]
     Dosage: ORAL
     Route: 048
     Dates: start: 20040701

REACTIONS (3)
  - ABASIA [None]
  - TENDON DISORDER [None]
  - TENDON RUPTURE [None]
